FAERS Safety Report 5496858-8 (Version None)
Quarter: 2007Q4

REPORT INFORMATION
  Report Type: 
  Country: None (occurrence: None)
  Receive Date: 20071025
  Receipt Date: 20070828
  Transmission Date: 20080405
  Serious: Yes (Other)
  Sender: FDA-Public Use
  Company Number: A0676998A

PATIENT
  Age: 71 Year
  Sex: Female

DRUGS (5)
  1. ADVAIR DISKUS 100/50 [Suspect]
     Indication: CHRONIC OBSTRUCTIVE PULMONARY DISEASE
     Dosage: 1PUFF TWICE PER DAY
     Route: 055
     Dates: start: 20061201
  2. SPIRIVA [Concomitant]
  3. ALBUTEROL [Concomitant]
  4. EYE DROP [Concomitant]
     Indication: GLAUCOMA
  5. LORAZEPAM [Concomitant]

REACTIONS (1)
  - PNEUMONIA [None]
